FAERS Safety Report 23147644 (Version 2)
Quarter: 2023Q4

REPORT INFORMATION
  Report Type: Spontaneous
  Country: GB (occurrence: GB)
  Receive Date: 20231106
  Receipt Date: 20231107
  Transmission Date: 20240110
  Serious: Yes (Hospitalization, Other)
  Sender: FDA-Public Use
  Company Number: GB-SANDOZ-SDZ2023GB050269

PATIENT
  Age: 88 Year
  Sex: Female

DRUGS (4)
  1. METFORMIN [Suspect]
     Active Substance: METFORMIN HYDROCHLORIDE
     Indication: Type 2 diabetes mellitus
     Route: 065
  2. INSULIN GLARGINE [Concomitant]
     Active Substance: INSULIN GLARGINE
     Indication: Product used for unknown indication
     Dosage: UNK (10 UNITS)
     Route: 065
  3. ACTRAPID [Concomitant]
     Active Substance: INSULIN HUMAN
     Indication: Product used for unknown indication
     Dosage: UNK (10 UNITS)
     Route: 065
  4. NOVORAPID [Concomitant]
     Active Substance: INSULIN ASPART
     Indication: Product used for unknown indication
     Dosage: UNK (4 UNITS ) WITH A LITRE OF HARTMANN^S SOLUTION
     Route: 065

REACTIONS (2)
  - Blood glucose increased [Unknown]
  - Drug ineffective [Unknown]
